FAERS Safety Report 10421432 (Version 1)
Quarter: 2014Q3

REPORT INFORMATION
  Report Type: Spontaneous
  Country: US (occurrence: US)
  Receive Date: 20140901
  Receipt Date: 20140901
  Transmission Date: 20150326
  Serious: Yes (Other)
  Sender: FDA-Public Use
  Company Number: US-ROCHE-1454844

PATIENT
  Weight: 49.94 kg

DRUGS (3)
  1. PEGASYS [Suspect]
     Active Substance: PEGINTERFERON ALFA-2A
     Indication: HEPATITIS C
     Route: 058
     Dates: start: 20140811
  2. RIBASPHERE RIBAPAK [Suspect]
     Active Substance: RIBAVIRIN
     Indication: HEPATITIS C
     Dosage: 600MG/400MG AM/PM QD
     Route: 048
     Dates: start: 20140811
  3. SOVALDI [Suspect]
     Active Substance: SOFOSBUVIR
     Indication: HEPATITIS C
     Dosage: 1 TABLET QD
     Route: 048
     Dates: start: 20140811

REACTIONS (6)
  - Pain [Unknown]
  - Fatigue [Unknown]
  - Decreased appetite [Unknown]
  - Pruritus [Unknown]
  - Rash [Unknown]
  - Nausea [Unknown]
